FAERS Safety Report 18464895 (Version 1)
Quarter: 2020Q4

REPORT INFORMATION
  Report Type: Spontaneous
  Country: DE (occurrence: DE)
  Receive Date: 20201105
  Receipt Date: 20201105
  Transmission Date: 20210114
  Serious: Yes (Other)
  Sender: FDA-Public Use
  Company Number: DE-ABBVIE-20K-062-3636267-00

PATIENT
  Age: 57 Year
  Sex: Male

DRUGS (1)
  1. TESTOGEL [Suspect]
     Active Substance: TESTOSTERONE
     Indication: PRODUCT USED FOR UNKNOWN INDICATION
     Route: 061
     Dates: end: 2019

REACTIONS (5)
  - Intentional overdose [Recovered/Resolved]
  - Aggression [Unknown]
  - Drug abuse [Recovered/Resolved]
  - Toxicity to various agents [Unknown]
  - Psychiatric symptom [Unknown]
